FAERS Safety Report 11929259 (Version 1)
Quarter: 2016Q1

REPORT INFORMATION
  Report Type: Spontaneous
  Country: US (occurrence: US)
  Receive Date: 20160120
  Receipt Date: 20160120
  Transmission Date: 20160526
  Serious: No
  Sender: FDA-Public Use
  Company Number: US-THE MEDICINES COMPANY-US-MDCO-15-00477

PATIENT
  Sex: Male

DRUGS (8)
  1. KENGREAL [Suspect]
     Active Substance: CANGRELOR
     Dosage: NOT REPORTED
     Route: 041
  2. KENGREAL [Suspect]
     Active Substance: CANGRELOR
     Indication: PERCUTANEOUS CORONARY INTERVENTION
     Dosage: NOT REPORTED
     Route: 040
  3. INTEGRILIN [Concomitant]
     Active Substance: EPTIFIBATIDE
     Indication: PERCUTANEOUS CORONARY INTERVENTION
     Dosage: NOT REPORTED
     Route: 022
  4. KENGREAL [Suspect]
     Active Substance: CANGRELOR
     Dosage: NOT REPORTED
     Route: 041
  5. PLAVIX [Concomitant]
     Active Substance: CLOPIDOGREL BISULFATE
     Indication: PERCUTANEOUS CORONARY INTERVENTION
  6. KENGREAL [Suspect]
     Active Substance: CANGRELOR
     Dosage: NOT REPORTED
     Route: 040
  7. INTEGRILIN [Concomitant]
     Active Substance: EPTIFIBATIDE
     Dosage: NOR REPORTED
     Route: 041
  8. HEPARIN [Concomitant]
     Active Substance: HEPARIN SODIUM
     Indication: PERCUTANEOUS CORONARY INTERVENTION

REACTIONS (2)
  - Drug administration error [Unknown]
  - No adverse event [Unknown]
